FAERS Safety Report 7554039-8 (Version None)
Quarter: 2011Q2

REPORT INFORMATION
  Report Type: 
  Country: None (occurrence: None)
  Receive Date: 20110614
  Receipt Date: 20110614
  Transmission Date: 20111010
  Serious: Yes (Other)
  Sender: FDA-Public Use
  Company Number: None

PATIENT
  Age: 24 Year

DRUGS (1)
  1. PREVPAC [Suspect]

REACTIONS (2)
  - METAPLASIA [None]
  - VITAMIN D DEFICIENCY [None]
